FAERS Safety Report 18453055 (Version 1)
Quarter: 2020Q4

REPORT INFORMATION
  Report Type: Report from Study
  Country: US (occurrence: US)
  Receive Date: 20201102
  Receipt Date: 20201102
  Transmission Date: 20210114
  Serious: Yes (Other)
  Sender: FDA-Public Use
  Company Number: NVSC2020US290032

PATIENT
  Sex: Female
  Weight: 90.26 kg

DRUGS (3)
  1. COSENTYX [Suspect]
     Active Substance: SECUKINUMAB
     Dosage: 150 MG, QMO
     Route: 058
     Dates: start: 20190615, end: 20191208
  2. COSENTYX [Suspect]
     Active Substance: SECUKINUMAB
     Dosage: UNK, BIW
     Route: 058
     Dates: start: 202004
  3. COSENTYX [Suspect]
     Active Substance: SECUKINUMAB
     Indication: PSORIATIC ARTHROPATHY
     Dosage: 150 MG, QMO
     Route: 058
     Dates: start: 20190219, end: 20190615

REACTIONS (2)
  - Herpes zoster [Unknown]
  - Pneumonia [Unknown]

NARRATIVE: CASE EVENT DATE: 20191208
